FAERS Safety Report 7928300-9 (Version None)
Quarter: 2011Q4

REPORT INFORMATION
  Report Type: 
  Country: None (occurrence: None)
  Receive Date: 20111118
  Receipt Date: 20111116
  Transmission Date: 20120403
  Serious: No
  Sender: FDA-Public Use
  Company Number: US-PFIZER INC-2007059479

PATIENT
  Sex: Female
  Weight: 70.748 kg

DRUGS (11)
  1. LISINOPRIL [Concomitant]
     Indication: HYPERTENSION
  2. CHANTIX [Suspect]
     Dosage: 0.5 MG, 1X/DAY
     Route: 048
     Dates: start: 20110901
  3. CHANTIX [Suspect]
     Dosage: UNK
     Route: 048
  4. CHANTIX [Suspect]
     Indication: SMOKING CESSATION THERAPY
     Route: 048
     Dates: start: 20070701
  5. HYDROCHLOROTHIAZIDE [Concomitant]
  6. MECLIZINE [Concomitant]
  7. FLEXERIL [Concomitant]
  8. AMBIEN [Concomitant]
  9. COREG [Concomitant]
     Indication: HYPERTENSION
     Dosage: UNK
  10. ASPIRIN [Concomitant]
     Dosage: UNK
  11. ACETYLSALICYLIC ACID [Concomitant]
     Indication: CARDIAC DISORDER
     Dosage: 325 MG, UNK

REACTIONS (3)
  - MALAISE [None]
  - NAUSEA [None]
  - TINNITUS [None]
